FAERS Safety Report 21383004 (Version 1)
Quarter: 2022Q3

REPORT INFORMATION
  Report Type: Spontaneous
  Country: US (occurrence: US)
  Receive Date: 20220927
  Receipt Date: 20220927
  Transmission Date: 20221026
  Serious: No
  Sender: FDA-Public Use
  Company Number: US-SA-2022SA393861

PATIENT
  Age: 70 Year
  Sex: Male

DRUGS (1)
  1. DUPIXENT [Suspect]
     Active Substance: DUPILUMAB
     Indication: Nasal polyps
     Dosage: 300 MG, QOW
     Route: 058
     Dates: start: 202206

REACTIONS (4)
  - Cough [Not Recovered/Not Resolved]
  - Secretion discharge [Not Recovered/Not Resolved]
  - Periorbital irritation [Unknown]
  - Dry skin [Unknown]

NARRATIVE: CASE EVENT DATE: 20220801
